FAERS Safety Report 25079008 (Version 2)
Quarter: 2025Q1

REPORT INFORMATION
  Report Type: Spontaneous
  Country: US (occurrence: US)
  Receive Date: 20250314
  Receipt Date: 20250319
  Transmission Date: 20250409
  Serious: Yes (Other)
  Sender: UCB
  Company Number: US-UCBSA-2025014609

PATIENT
  Sex: Female

DRUGS (1)
  1. KEPPRA [Suspect]
     Active Substance: LEVETIRACETAM
     Indication: Product used for unknown indication
     Dosage: 1000 MILLIGRAM, 2X/DAY (BID)
     Route: 048
     Dates: start: 2014

REACTIONS (2)
  - Nephrolithiasis [Unknown]
  - Behaviour disorder [Unknown]
